FAERS Safety Report 11335464 (Version 1)
Quarter: 2015Q3

REPORT INFORMATION
  Report Type: Spontaneous
  Country: FR (occurrence: FR)
  Receive Date: 20150804
  Receipt Date: 20150804
  Transmission Date: 20151125
  Serious: Yes (Death)
  Sender: FDA-Public Use
  Company Number: FR-MEDA-2015050052

PATIENT

DRUGS (1)
  1. TALOXA [Suspect]
     Active Substance: FELBAMATE
     Route: 048

REACTIONS (1)
  - Death [Fatal]
